FAERS Safety Report 17837819 (Version 1)
Quarter: 2020Q2

REPORT INFORMATION
  Report Type: Spontaneous
  Country: US (occurrence: US)
  Receive Date: 20200528
  Receipt Date: 20200528
  Transmission Date: 20200714
  Serious: No
  Sender: FDA-Public Use
  Company Number: US-SEBELA IRELAND LIMITED-2020SEB00034

PATIENT
  Sex: Female

DRUGS (1)
  1. LOTRONEX [Suspect]
     Active Substance: ALOSETRON HYDROCHLORIDE
     Dosage: 0.5 MG, 2X/DAY
     Route: 048
     Dates: start: 201912

REACTIONS (4)
  - Weight increased [Not Recovered/Not Resolved]
  - Dizziness [Not Recovered/Not Resolved]
  - Vulvovaginal mycotic infection [Not Recovered/Not Resolved]
  - Headache [Not Recovered/Not Resolved]

NARRATIVE: CASE EVENT DATE: 20200311
